FAERS Safety Report 7018115-0 (Version None)
Quarter: 2010Q3

REPORT INFORMATION
  Report Type: 
  Country: None (occurrence: None)
  Receive Date: 20100927
  Receipt Date: 20100927
  Transmission Date: 20110219
  Serious: Yes (Other)
  Sender: FDA-Public Use
  Company Number: None

PATIENT
  Sex: Male
  Weight: 20.8655 kg

DRUGS (2)
  1. SINGULAIR [Suspect]
     Indication: ASTHMA
     Dosage: 1 TABLET ONCE AT BEDTIME PO
     Route: 048
     Dates: start: 20080301, end: 20100924
  2. SINGULAIR [Suspect]
     Indication: MULTIPLE ALLERGIES
     Dosage: 1 TABLET ONCE AT BEDTIME PO
     Route: 048
     Dates: start: 20080301, end: 20100924

REACTIONS (20)
  - ABNORMAL DREAMS [None]
  - ANGER [None]
  - ATTENTION DEFICIT/HYPERACTIVITY DISORDER [None]
  - BRUXISM [None]
  - COUGH [None]
  - DISTURBANCE IN ATTENTION [None]
  - ENURESIS [None]
  - FEELING ABNORMAL [None]
  - HUNGER [None]
  - INSOMNIA [None]
  - IRRITABILITY [None]
  - MOOD SWINGS [None]
  - NASAL CONGESTION [None]
  - ONYCHOPHAGIA [None]
  - POLLAKIURIA [None]
  - PSYCHOMOTOR HYPERACTIVITY [None]
  - SLEEP TERROR [None]
  - THIRST [None]
  - VISUAL IMPAIRMENT [None]
  - WEIGHT FLUCTUATION [None]
